FAERS Safety Report 26008876 (Version 1)
Quarter: 2025Q4

REPORT INFORMATION
  Report Type: Report from Study
  Country: EU (occurrence: EU)
  Receive Date: 20251106
  Receipt Date: 20251106
  Transmission Date: 20260118
  Serious: Yes (Death, Other)
  Sender: ABBVIE
  Company Number: EU-ABBVIE-6535706

PATIENT
  Age: 59 Year
  Sex: Female

DRUGS (1)
  1. FOSCARBIDOPA\FOSLEVODOPA [Suspect]
     Active Substance: FOSCARBIDOPA\FOSLEVODOPA
     Indication: Multiple system atrophy
     Dosage: LD: 0.6ML ?CR: ?LOW: 0.30ML/H ?BASE: 0.38ML/H ?HIGH: 0.40ML/H ?ED: 0.15ML
     Route: 058
     Dates: start: 20250731

REACTIONS (3)
  - Death [Fatal]
  - Loss of consciousness [Not Recovered/Not Resolved]
  - Pyrexia [Not Recovered/Not Resolved]

NARRATIVE: CASE EVENT DATE: 20251031
